FAERS Safety Report 7351182-3 (Version None)
Quarter: 2011Q1

REPORT INFORMATION
  Report Type: 
  Country: None (occurrence: None)
  Receive Date: 20110314
  Receipt Date: 20110304
  Transmission Date: 20110831
  Serious: Yes (Disabling, Other)
  Sender: FDA-Public Use
  Company Number: US-PURDUE-USA-2011-0064883

PATIENT
  Age: 56 Year
  Sex: Male

DRUGS (2)
  1. HYDROCODONE BITARTRATE [Concomitant]
     Indication: BREAKTHROUGH PAIN
     Dosage: 20 TABLET, DAILY
  2. OXYCONTIN [Suspect]
     Indication: PAIN
     Dosage: 160 MG, TID

REACTIONS (2)
  - SUICIDAL IDEATION [None]
  - PAIN [None]
